FAERS Safety Report 8097680-9 (Version None)
Quarter: 2012Q1

REPORT INFORMATION
  Report Type: 
  Country: None (occurrence: None)
  Receive Date: 20120128
  Receipt Date: 20110714
  Transmission Date: 20120608
  Serious: No
  Sender: FDA-Public Use
  Company Number: US-ABBOTT-11P-163-0838898-00

PATIENT
  Age: 66 Year
  Sex: Female

DRUGS (13)
  1. METFORMIN HCL [Concomitant]
     Indication: PRODUCT USED FOR UNKNOWN INDICATION
     Dates: start: 20060101
  2. LASIX [Concomitant]
     Indication: PRODUCT USED FOR UNKNOWN INDICATION
     Dates: start: 20050101
  3. MERCAPTOPURINE [Concomitant]
     Indication: PRODUCT USED FOR UNKNOWN INDICATION
  4. GLIPIZIDE [Concomitant]
     Indication: PRODUCT USED FOR UNKNOWN INDICATION
     Dates: start: 20060101
  5. AVAPRO [Concomitant]
     Indication: PRODUCT USED FOR UNKNOWN INDICATION
     Dates: start: 20060101
  6. AMITRIPTYLINE HCL [Concomitant]
     Indication: PRODUCT USED FOR UNKNOWN INDICATION
     Dates: start: 20060101
  7. CYCLOBENZAPRINE [Concomitant]
     Indication: PRODUCT USED FOR UNKNOWN INDICATION
     Dates: start: 20050101
  8. PAXIL [Concomitant]
     Indication: PRODUCT USED FOR UNKNOWN INDICATION
     Dates: start: 20060101
  9. INDAPAMIDE [Concomitant]
     Indication: PRODUCT USED FOR UNKNOWN INDICATION
     Dates: start: 20050101
  10. ASPIRIN [Concomitant]
     Indication: PRODUCT USED FOR UNKNOWN INDICATION
  11. HUMIRA [Suspect]
     Indication: CROHN'S DISEASE
     Dates: start: 20070601
  12. MELOXICAM [Concomitant]
     Indication: PRODUCT USED FOR UNKNOWN INDICATION
     Dates: start: 20060101
  13. UNKNOWN TOPICAL CREAM [Concomitant]
     Indication: FUNGAL INFECTION

REACTIONS (4)
  - HYPOTHYROIDISM [None]
  - DIABETES MELLITUS INADEQUATE CONTROL [None]
  - PRECANCEROUS SKIN LESION [None]
  - TINEA PEDIS [None]
